FAERS Safety Report 8990329 (Version 1)
Quarter: 2012Q4

REPORT INFORMATION
  Report Type: 
  Country: US (occurrence: US)
  Receive Date: 20121228
  Receipt Date: 20121228
  Transmission Date: 20130627
  Serious: Yes (Other)
  Sender: FDA-Public Use
  Company Number: US-ACTELION-A-US2012-73886

PATIENT
  Age: 74 Year
  Sex: Female

DRUGS (4)
  1. TRACLEER [Suspect]
     Indication: PULMONARY ARTERIAL HYPERTENSION
     Dosage: UNK
     Route: 048
  2. ADCIRCA [Concomitant]
  3. TYVASO [Concomitant]
  4. ASPIRIN [Concomitant]

REACTIONS (3)
  - Fibromyalgia [Unknown]
  - Pneumonia [Unknown]
  - Dysphonia [Unknown]
